FAERS Safety Report 10676416 (Version 1)
Quarter: 2014Q4

REPORT INFORMATION
  Report Type: Spontaneous
  Country: GB (occurrence: GB)
  Receive Date: 20141226
  Receipt Date: 20141226
  Transmission Date: 20150529
  Serious: Yes (Disabling, Other)
  Sender: FDA-Public Use
  Company Number: GB-BAYER-2014-185643

PATIENT
  Sex: Female

DRUGS (1)
  1. MIRENA [Suspect]
     Active Substance: LEVONORGESTREL
     Dosage: UNK
     Route: 015
     Dates: start: 201407, end: 2014

REACTIONS (11)
  - Tremor [Unknown]
  - Amnesia [Unknown]
  - Fatigue [Unknown]
  - Depression [Unknown]
  - Alopecia [Unknown]
  - Chest pain [Unknown]
  - Anxiety [Unknown]
  - Reaction to drug excipients [Unknown]
  - Paraesthesia [Unknown]
  - Chemical poisoning [Unknown]
  - Headache [Unknown]

NARRATIVE: CASE EVENT DATE: 201407
